FAERS Safety Report 14276906 (Version 1)
Quarter: 2017Q4

REPORT INFORMATION
  Report Type: Spontaneous
  Country: AU (occurrence: AU)
  Receive Date: 20171212
  Receipt Date: 20171212
  Transmission Date: 20180321
  Serious: No
  Sender: FDA-Public Use
  Company Number: AU-LUPIN PHARMACEUTICALS INC.-2017-01235

PATIENT
  Age: 37 Year
  Sex: Female

DRUGS (1)
  1. EVELYN 150/30 ED TABLET [Suspect]
     Active Substance: ETHINYL ESTRADIOL\LEVONORGESTREL
     Indication: PRODUCT USED FOR UNKNOWN INDICATION
     Dosage: UNK
     Route: 065
     Dates: end: 20170310

REACTIONS (3)
  - Product substitution issue [None]
  - Nausea [Unknown]
  - Metrorrhagia [Unknown]
